FAERS Safety Report 15361906 (Version 2)
Quarter: 2018Q3

REPORT INFORMATION
  Report Type: Spontaneous
  Country: US (occurrence: US)
  Receive Date: 20180907
  Receipt Date: 20180911
  Transmission Date: 20181010
  Serious: No
  Sender: FDA-Public Use
  Company Number: US-BEH-2018094601

PATIENT
  Age: 53 Year
  Sex: Female

DRUGS (2)
  1. HIZENTRA [Suspect]
     Active Substance: HUMAN IMMUNOGLOBULIN G
     Dosage: 8 G, TOT
     Route: 058
     Dates: start: 20180816, end: 20180816
  2. HIZENTRA [Suspect]
     Active Substance: HUMAN IMMUNOGLOBULIN G
     Indication: IMMUNODEFICIENCY COMMON VARIABLE
     Dosage: 8 G, QW
     Route: 058
     Dates: start: 20161111

REACTIONS (6)
  - Rash pruritic [Unknown]
  - Pruritus [Unknown]
  - Inflammation [Unknown]
  - Rash erythematous [Unknown]
  - Rash generalised [Unknown]
  - Sleep disorder [Unknown]

NARRATIVE: CASE EVENT DATE: 201808
